FAERS Safety Report 7659973-6 (Version None)
Quarter: 2011Q3

REPORT INFORMATION
  Report Type: 
  Country: None (occurrence: None)
  Receive Date: 20110805
  Receipt Date: 20110801
  Transmission Date: 20111222
  Serious: Yes (Death, Hospitalization, Other)
  Sender: FDA-Public Use
  Company Number: DE-BRISTOL-MYERS SQUIBB COMPANY-15929565

PATIENT
  Age: 66 Year
  Sex: Male
  Weight: 60 kg

DRUGS (5)
  1. PANTOPRAZOLE [Concomitant]
  2. FUROSEMIDE [Concomitant]
  3. AMLODIPINE [Concomitant]
  4. METFORMIN HCL [Concomitant]
  5. IPILIMUMAB [Suspect]
     Indication: MALIGNANT MELANOMA
     Dosage: OVER 90 MIN PERIOD,VIAL NO:216419+20,261056-39
     Route: 042
     Dates: start: 20110317, end: 20110505

REACTIONS (3)
  - SEPSIS [None]
  - NEOPLASM MALIGNANT [None]
  - TUMOUR NECROSIS [None]
